FAERS Safety Report 4464924-1 (Version None)
Quarter: 2004Q4

REPORT INFORMATION
  Report Type: 
  Country: None (occurrence: None)
  Receive Date: 20041004
  Receipt Date: 20040304
  Transmission Date: 20050328
  Serious: No
  Sender: FDA-Public Use
  Company Number: MCN364915

PATIENT
  Sex: Male

DRUGS (11)
  1. COREG [Suspect]
     Dosage: 6.25MG TWICE PER DAY
     Route: 048
     Dates: start: 20040116
  2. LANOXIN [Concomitant]
  3. NITRO PATCH [Concomitant]
  4. CAPTOPRIL [Concomitant]
  5. NEXIUM [Concomitant]
  6. PLAVIX [Concomitant]
  7. SINGULAIR [Concomitant]
  8. SYNTHROID [Concomitant]
  9. EFFEXOR [Concomitant]
  10. MEGACE [Concomitant]
  11. TONIC [Concomitant]

REACTIONS (2)
  - SOMNOLENCE [None]
  - WEIGHT DECREASED [None]
